FAERS Safety Report 9601359 (Version 15)
Quarter: 2014Q2

REPORT INFORMATION
  Report Type: Spontaneous
  Country: IL (occurrence: IL)
  Receive Date: 20131007
  Receipt Date: 20140416
  Transmission Date: 20141212
  Serious: Yes (Disabling)
  Sender: FDA-Public Use
  Company Number: IL-009507513-1307ISR017085

PATIENT
  Age: 67 Year
  Sex: Female

DRUGS (14)
  1. VICTRELIS [Suspect]
     Dosage: UNK, TID
     Route: 048
     Dates: start: 20130530, end: 20130814
  2. VICTRELIS [Suspect]
     Dosage: UNK
     Route: 048
     Dates: start: 20130818, end: 20140101
  3. VICTRELIS [Suspect]
     Dosage: UNK
     Route: 048
     Dates: start: 20140104
  4. VICTRELIS [Suspect]
     Dosage: UNK
     Dates: start: 20130530, end: 20140402
  5. PEGASYS [Suspect]
     Indication: HEPATITIS C
     Dosage: 180 MICROGRAM
     Dates: start: 20130502, end: 201305
  6. PEGASYS [Suspect]
     Dosage: 90 MICROGRAM
     Dates: start: 201305
  7. PEGASYS [Suspect]
     Dosage: UNK
     Dates: start: 20130502, end: 20140327
  8. COPEGUS [Suspect]
     Indication: HEPATITIS C
     Dosage: 1000MG,FIVE TABLETS A DAY
     Route: 048
     Dates: start: 20130502, end: 201305
  9. COPEGUS [Suspect]
     Dosage: 400MG,TWO TABLETS A DAY
     Route: 048
     Dates: start: 201305, end: 20130814
  10. COPEGUS [Suspect]
     Dosage: 400 MG,TWO TABLETS A DAY
     Route: 048
     Dates: start: 20130818, end: 20140101
  11. COPEGUS [Suspect]
     Dosage: 400 MG,TWO TABLETS A DAY
     Route: 048
     Dates: start: 20140104
  12. COPEGUS [Suspect]
     Dosage: UNK
     Dates: start: 20130502, end: 20140402
  13. VITAMIN D (UNSPECIFIED) [Concomitant]
     Dosage: 10 DROPS A DAY
  14. VALERIAN [Concomitant]

REACTIONS (87)
  - Agitation [Not Recovered/Not Resolved]
  - Depressed mood [Unknown]
  - Pruritus generalised [Unknown]
  - Anxiety [Not Recovered/Not Resolved]
  - Drug dose omission [Unknown]
  - Neuralgia [Not Recovered/Not Resolved]
  - Impaired gastric emptying [Unknown]
  - Cardiac disorder [Unknown]
  - Gastrointestinal pain [Unknown]
  - Gastrointestinal inflammation [Unknown]
  - Flatulence [Unknown]
  - Abdominal distension [Unknown]
  - Adverse event [Unknown]
  - Bone disorder [Unknown]
  - Dysphagia [Unknown]
  - Tooth loss [Unknown]
  - Tooth disorder [Unknown]
  - Dysphagia [Unknown]
  - Vascular pain [Unknown]
  - Angina pectoris [Unknown]
  - Gastrointestinal pain [Unknown]
  - Neuralgia [Not Recovered/Not Resolved]
  - Loose tooth [Not Recovered/Not Resolved]
  - Pulpitis dental [Not Recovered/Not Resolved]
  - Toothache [Not Recovered/Not Resolved]
  - Gingival pain [Not Recovered/Not Resolved]
  - Gingival inflammation [Not Recovered/Not Resolved]
  - Tooth extraction [Not Recovered/Not Resolved]
  - Agitation [Not Recovered/Not Resolved]
  - Burning sensation [Not Recovered/Not Resolved]
  - Mucosal dryness [Unknown]
  - Pruritus [Unknown]
  - Abdominal pain [Unknown]
  - Constipation [Unknown]
  - Dyspepsia [Unknown]
  - Myalgia [Unknown]
  - Agitation [Not Recovered/Not Resolved]
  - Bone pain [Not Recovered/Not Resolved]
  - Rash [Not Recovered/Not Resolved]
  - Dry skin [Unknown]
  - Asthenia [Unknown]
  - Dizziness [Not Recovered/Not Resolved]
  - Nausea [Unknown]
  - Vomiting [Unknown]
  - Vomiting [Unknown]
  - Dysgeusia [Unknown]
  - Platelet count decreased [Unknown]
  - Decreased appetite [Unknown]
  - Arthralgia [Unknown]
  - Diarrhoea [Unknown]
  - Alopecia [Not Recovered/Not Resolved]
  - Decreased appetite [Recovered/Resolved]
  - Dyspnoea [Not Recovered/Not Resolved]
  - Dyspnoea [Unknown]
  - Dizziness [Unknown]
  - Dizziness [Not Recovered/Not Resolved]
  - Headache [Unknown]
  - Headache [Not Recovered/Not Resolved]
  - Physical disability [Not Recovered/Not Resolved]
  - Deformity [Unknown]
  - Nervousness [Not Recovered/Not Resolved]
  - Gait disturbance [Unknown]
  - Gastrointestinal pain [Unknown]
  - Frustration [Not Recovered/Not Resolved]
  - Bedridden [Unknown]
  - Renal pain [Unknown]
  - Adnexa uteri pain [Unknown]
  - Urinary tract inflammation [Not Recovered/Not Resolved]
  - Limb deformity [Not Recovered/Not Resolved]
  - Wound secretion [Unknown]
  - Wound complication [Unknown]
  - Blood test abnormal [Unknown]
  - Neutrophil count abnormal [Unknown]
  - Fear of falling [Unknown]
  - Skin irritation [Unknown]
  - Tooth loss [Unknown]
  - Gastrointestinal inflammation [Unknown]
  - Crying [Unknown]
  - Musculoskeletal stiffness [Unknown]
  - Neuralgia [Not Recovered/Not Resolved]
  - Constipation [Not Recovered/Not Resolved]
  - Mental impairment [Not Recovered/Not Resolved]
  - Malaise [Not Recovered/Not Resolved]
  - Palpitations [Not Recovered/Not Resolved]
  - Skin lesion [Not Recovered/Not Resolved]
  - Bone pain [Not Recovered/Not Resolved]
  - Pain [Not Recovered/Not Resolved]
